FAERS Safety Report 20675349 (Version 2)
Quarter: 2022Q2

REPORT INFORMATION
  Report Type: Spontaneous
  Country: JP (occurrence: JP)
  Receive Date: 20220405
  Receipt Date: 20220427
  Transmission Date: 20220721
  Serious: Yes (Death, Life-Threatening, Hospitalization, Other)
  Sender: FDA-Public Use
  Company Number: JP-TAKEDA-2022TEU002391

PATIENT
  Age: 87 Year
  Sex: Male

DRUGS (3)
  1. MIDODRINE HYDROCHLORIDE [Suspect]
     Active Substance: MIDODRINE HYDROCHLORIDE
     Indication: Syncope
     Dosage: 2 MILLIGRAM
     Route: 048
     Dates: start: 201601
  2. MIDODRINE HYDROCHLORIDE [Suspect]
     Active Substance: MIDODRINE HYDROCHLORIDE
     Indication: Orthostatic hypotension
     Dosage: 2.5 MILLIGRAM
     Route: 048
  3. EDOXABAN TOSYLATE [Concomitant]
     Active Substance: EDOXABAN TOSYLATE
     Indication: Cerebral infarction
     Dosage: 30 MILLIGRAM
     Route: 048
     Dates: start: 201801

REACTIONS (9)
  - Melaena [Fatal]
  - Cerebral infarction [Recovering/Resolving]
  - Autonomic nervous system imbalance [Recovering/Resolving]
  - Volvulus [Recovering/Resolving]
  - Pneumonia aspiration [Unknown]
  - Weight decreased [Unknown]
  - Atrial fibrillation [Recovering/Resolving]
  - Constipation [Recovering/Resolving]
  - Heart rate variability decreased [Recovering/Resolving]

NARRATIVE: CASE EVENT DATE: 20160101
